FAERS Safety Report 5094371-3 (Version None)
Quarter: 2006Q3

REPORT INFORMATION
  Report Type: 
  Country: None (occurrence: None)
  Receive Date: 20060731
  Receipt Date: 20060422
  Transmission Date: 20061208
  Serious: No
  Sender: FDA-Public Use
  Company Number: 2006PV012544

PATIENT
  Age: 34 Year
  Sex: Female
  Weight: 123.832 kg

DRUGS (2)
  1. BYETTA [Suspect]
     Indication: DIABETES MELLITUS NON-INSULIN-DEPENDENT
     Dosage: 10 MCG; BID; SC
     Route: 058
     Dates: start: 20060212
  2. METFORMIN HCL [Concomitant]

REACTIONS (4)
  - BRONCHITIS [None]
  - NASOPHARYNGITIS [None]
  - PYREXIA [None]
  - WEIGHT DECREASED [None]
